FAERS Safety Report 9412531 (Version 1)
Quarter: 2013Q3

REPORT INFORMATION
  Report Type: Spontaneous
  Country: GB (occurrence: None)
  Receive Date: 20130715
  Receipt Date: 20130715
  Transmission Date: 20140515
  Serious: Yes (Other)
  Sender: FDA-Public Use
  Company Number: 2013GB0163

PATIENT
  Sex: Female

DRUGS (2)
  1. KINERET [Suspect]
     Indication: ARTHRITIS
     Dosage: 100MG 1 IN 1 D
     Route: 058
     Dates: start: 20120101
  2. ETORICOXIB (ETORICOXIB) (TABLET) (ETORICOXIB) [Concomitant]

REACTIONS (2)
  - Foetal exposure during pregnancy [None]
  - Abortion spontaneous [None]
